FAERS Safety Report 7209940-1 (Version None)
Quarter: 2011Q1

REPORT INFORMATION
  Report Type: 
  Country: None (occurrence: None)
  Receive Date: 20110105
  Receipt Date: 20101228
  Transmission Date: 20110831
  Serious: No
  Sender: FDA-Public Use
  Company Number: US-BIOGENIDEC-2010BI025300

PATIENT
  Sex: Female

DRUGS (1)
  1. TYSABRI [Suspect]
     Indication: MULTIPLE SCLEROSIS
     Route: 042
     Dates: start: 20090508

REACTIONS (9)
  - INFLUENZA [None]
  - CONTUSION [None]
  - INTESTINAL OBSTRUCTION [None]
  - DEPRESSION [None]
  - OEDEMA PERIPHERAL [None]
  - NEPHROLITHIASIS [None]
  - DYSPEPSIA [None]
  - BACK PAIN [None]
  - URTICARIA [None]
